FAERS Safety Report 9220327 (Version 2)
Quarter: 2014Q1

REPORT INFORMATION
  Report Type: Spontaneous
  Country: US (occurrence: US)
  Receive Date: 20130409
  Receipt Date: 20140123
  Transmission Date: 20141002
  Serious: Yes (Other)
  Sender: FDA-Public Use
  Company Number: PHHY2013US033180

PATIENT
  Age: 81 Year
  Sex: Female

DRUGS (14)
  1. ASCRIPTIN BUFFERED REG STRENGTH TABLETS [Suspect]
     Indication: PAIN
     Dosage: 1 DF, WHENEVER PAIN PERSISTED AT A TIME
     Route: 048
     Dates: start: 1990
  2. ASCRIPTIN BUFFERED REG STRENGTH TABLETS [Suspect]
     Dosage: 1 OR 2 DF DAILY
  3. ASCRIPTIN BUFFERED REG STRENGTH TABLETS [Suspect]
     Dosage: 6 DF, DAILY
  4. ASCRIPTIN BUFFERED REG STRENGTH TABLETS [Suspect]
     Dosage: 2 OR 3 DF DAILY
  5. ASCRIPTIN BUFFERED REG STRENGTH TABLETS [Suspect]
     Dosage: 1 DF, UNK
  6. ADVIL [Suspect]
     Dates: end: 201202
  7. VITALIPID//VITAMINS NOS [Concomitant]
  8. VITAMIN B12 [Concomitant]
  9. CALCIFEROL [Concomitant]
  10. ALLERGY MEDICATION [Concomitant]
  11. EXCEDRIN [Concomitant]
  12. TYLENOL [Concomitant]
  13. OPIOIDS [Concomitant]
  14. DILAUDID [Concomitant]

REACTIONS (8)
  - Cataract [Recovering/Resolving]
  - Spinal column injury [Recovering/Resolving]
  - Skeletal injury [Recovered/Resolved]
  - Fall [Unknown]
  - Sciatica [Recovering/Resolving]
  - Joint swelling [Unknown]
  - Limb injury [Recovered/Resolved]
  - Incorrect drug administration duration [Unknown]
